FAERS Safety Report 9899912 (Version 1)
Quarter: 2014Q1

REPORT INFORMATION
  Report Type: Not Available
  Country: US (occurrence: US)
  Receive Date: 20140214
  Receipt Date: 20140214
  Transmission Date: 20141002
  Serious: No
  Sender: FDA-Public Use
  Company Number: US-VIVUS-2013V1000800

PATIENT
  Sex: Female
  Weight: 68.1 kg

DRUGS (3)
  1. QSYMIA 3.75MG/23MG [Suspect]
     Indication: WEIGHT DECREASED
     Route: 048
  2. QSYMIA 3.75MG/23MG [Suspect]
     Route: 048
     Dates: start: 20131009, end: 20131011
  3. QSYMIA 3.75MG/23MG [Suspect]
     Route: 048
     Dates: start: 20131013

REACTIONS (3)
  - Dizziness [Not Recovered/Not Resolved]
  - Feeling abnormal [Not Recovered/Not Resolved]
  - Adverse drug reaction [Not Recovered/Not Resolved]
